FAERS Safety Report 9422405 (Version 1)
Quarter: 2013Q3

REPORT INFORMATION
  Report Type: Spontaneous
  Country: FR (occurrence: None)
  Receive Date: 20130722
  Receipt Date: 20130722
  Transmission Date: 20140515
  Serious: Yes (Congenital Anomaly)
  Sender: FDA-Public Use
  Company Number: 2013036926

PATIENT
  Age: 1 Day
  Sex: Male

DRUGS (3)
  1. RHOPHYLAC [Suspect]
  2. CLOMID [Suspect]
     Indication: OVULATION INDUCTION
  3. MOPRAL (OMEPRAZOLE) [Suspect]

REACTIONS (6)
  - Foetal growth restriction [None]
  - Hypospadias [None]
  - Genitalia external ambiguous [None]
  - Maternal drugs affecting foetus [None]
  - Premature baby [None]
  - Caesarean section [None]
